FAERS Safety Report 17939651 (Version 1)
Quarter: 2020Q2

REPORT INFORMATION
  Report Type: Spontaneous
  Country: SI (occurrence: SI)
  Receive Date: 20200624
  Receipt Date: 20200624
  Transmission Date: 20200714
  Serious: Yes (Death, Hospitalization, Other)
  Sender: FDA-Public Use
  Company Number: SI-BAYER-2020-120481

PATIENT
  Sex: Male

DRUGS (7)
  1. PERINDOPRIL [Concomitant]
     Active Substance: PERINDOPRIL
  2. ACETYLSALICYLIC ACID [Concomitant]
     Active Substance: ASPIRIN
  3. ESCITALOPRAM [Concomitant]
     Active Substance: ESCITALOPRAM OXALATE
  4. LACIDIPINE [Suspect]
     Active Substance: LACIDIPINE
  5. ATORVASTATIN [Concomitant]
     Active Substance: ATORVASTATIN
  6. STIVARGA [Suspect]
     Active Substance: REGORAFENIB
     Indication: COLON CANCER
     Dosage: UNK
     Dates: start: 201503, end: 201608
  7. BISOPROLOL [Concomitant]
     Active Substance: BISOPROLOL

REACTIONS (6)
  - Metastases to liver [None]
  - Dermatitis acneiform [None]
  - Death [Fatal]
  - Malignant peritoneal neoplasm [None]
  - Blood pressure increased [None]
  - Colon cancer [None]

NARRATIVE: CASE EVENT DATE: 2017
